FAERS Safety Report 10060479 (Version 1)
Quarter: 2014Q2

REPORT INFORMATION
  Report Type: Spontaneous
  Country: FR (occurrence: FR)
  Receive Date: 20140404
  Receipt Date: 20140404
  Transmission Date: 20141212
  Serious: Yes (Death, Other)
  Sender: FDA-Public Use
  Company Number: FR-PFIZER INC-2014094172

PATIENT
  Age: 86 Year
  Sex: Female

DRUGS (8)
  1. INIPOMP [Suspect]
     Dosage: 40 MG, 1X/DAY
     Route: 048
     Dates: start: 20131209, end: 20131227
  2. PROGLICEM [Suspect]
     Indication: HYPOGLYCAEMIA
     Dosage: 75 MG, 1X/DAY
     Route: 048
     Dates: start: 20131208
  3. PROGLICEM [Suspect]
     Dosage: 300 MG, 1X/DAY
     Route: 048
     Dates: start: 20131213, end: 20131227
  4. SERESTA [Concomitant]
     Dosage: UNK
     Dates: start: 20131128, end: 20131216
  5. ATENOLOL [Concomitant]
  6. FUROSEMIDE [Concomitant]
  7. NORDAZ [Concomitant]
  8. GINKOR FORT [Concomitant]

REACTIONS (2)
  - Renal failure acute [Fatal]
  - Cardiac failure [Not Recovered/Not Resolved]
